FAERS Safety Report 8116419-1 (Version None)
Quarter: 2012Q1

REPORT INFORMATION
  Report Type: 
  Country: None (occurrence: None)
  Receive Date: 20120206
  Receipt Date: 20120202
  Transmission Date: 20120608
  Serious: No
  Sender: FDA-Public Use
  Company Number: US-PFIZER INC-2012029588

PATIENT
  Sex: Female
  Weight: 56.236 kg

DRUGS (5)
  1. ACETYLSALICYLIC ACID [Concomitant]
     Indication: CARDIAC DISORDER
     Dosage: UNK
  2. ISOSORBIDE [Concomitant]
     Indication: ANGINA PECTORIS
     Dosage: UNK
  3. DILTIAZEM [Concomitant]
     Indication: CARDIAC DISORDER
     Dosage: UNK
  4. LEVOXYL [Concomitant]
     Indication: THYROID DISORDER
     Dosage: UNK
  5. LIPITOR [Suspect]
     Indication: BLOOD CHOLESTEROL INCREASED
     Dosage: UNK
     Route: 048
     Dates: start: 20060101

REACTIONS (1)
  - BLOOD CHOLESTEROL INCREASED [None]
